FAERS Safety Report 25334315 (Version 1)
Quarter: 2025Q2

REPORT INFORMATION
  Report Type: Spontaneous
  Country: US (occurrence: US)
  Receive Date: 20250520
  Receipt Date: 20250520
  Transmission Date: 20250716
  Serious: Yes (Other)
  Sender: RADIUS PHARM
  Company Number: US-RADIUS HEALTH INC.-2025US000850

PATIENT
  Sex: Female

DRUGS (1)
  1. TYMLOS [Suspect]
     Active Substance: ABALOPARATIDE
     Indication: Product used for unknown indication
     Dosage: 80 MICROGRAM, QD
     Route: 058

REACTIONS (10)
  - Atrial fibrillation [Unknown]
  - Heart rate irregular [Recovered/Resolved]
  - Unevaluable event [Unknown]
  - Sinus disorder [Recovering/Resolving]
  - Gastrooesophageal reflux disease [Recovered/Resolved]
  - Bone pain [Unknown]
  - Malaise [Unknown]
  - Palpitations [Unknown]
  - Dizziness [Unknown]
  - Heart rate increased [Unknown]
